FAERS Safety Report 5063699-5 (Version None)
Quarter: 2006Q3

REPORT INFORMATION
  Report Type: 
  Country: None (occurrence: None)
  Receive Date: 20060724
  Receipt Date: 20060703
  Transmission Date: 20061208
  Serious: Yes (Hospitalization)
  Sender: FDA-Public Use
  Company Number: 2006RR-02930

PATIENT
  Age: 21 Year
  Sex: Male

DRUGS (3)
  1. DICLOFENAC [Suspect]
     Indication: PHARYNGITIS
  2. IBUPROFEN [Suspect]
     Indication: PHARYNGITIS
  3. PENICILLIN [Suspect]
     Indication: TONSILLITIS

REACTIONS (22)
  - ABDOMINAL PAIN UPPER [None]
  - ACIDOSIS [None]
  - DERMATITIS EXFOLIATIVE [None]
  - DIABETES MELLITUS INSULIN-DEPENDENT [None]
  - DIABETIC KETOACIDOSIS [None]
  - DRUG INTERACTION [None]
  - DRUG RASH WITH EOSINOPHILIA AND SYSTEMIC SYMPTOMS [None]
  - EOSINOPHILIA [None]
  - FACE OEDEMA [None]
  - HEPATITIS [None]
  - HYPERGLYCAEMIA [None]
  - HYPEROSMOLAR STATE [None]
  - LEUKOCYTOSIS [None]
  - LICHENOID KERATOSIS [None]
  - LIP EROSION [None]
  - LYMPHOCYTOSIS [None]
  - METABOLIC ACIDOSIS [None]
  - PYREXIA [None]
  - RASH MACULO-PAPULAR [None]
  - RASH PRURITIC [None]
  - THROMBOCYTOPENIA [None]
  - VOMITING [None]
